FAERS Safety Report 24527306 (Version 2)
Quarter: 2024Q4

REPORT INFORMATION
  Report Type: Report from Study
  Country: US (occurrence: US)
  Receive Date: 20241021
  Receipt Date: 20241219
  Transmission Date: 20250115
  Serious: Yes (Hospitalization)
  Sender: ROCHE
  Company Number: US-ROCHE-3563619

PATIENT
  Age: 74 Year
  Sex: Male

DRUGS (1)
  1. COTELLIC [Suspect]
     Active Substance: COBIMETINIB
     Indication: Pancreatic carcinoma
     Dosage: MORE DOSAGE INFORMATION: TAKE 3 TABLET(S) BY MOUTH (60MG) TWICE A DAY MON-FRI AND OFF SAT/SUN THEN R
     Route: 048

REACTIONS (6)
  - Off label use [Unknown]
  - Illness [Unknown]
  - Rhinorrhoea [Unknown]
  - Feeling abnormal [Unknown]
  - Mental disorder [Unknown]
  - Urinary tract infection [Unknown]
